FAERS Safety Report 5418008-6 (Version None)
Quarter: 2007Q3

REPORT INFORMATION
  Report Type: 
  Country: None (occurrence: None)
  Receive Date: 20070817
  Receipt Date: 20070814
  Transmission Date: 20080115
  Serious: No
  Sender: FDA-Public Use
  Company Number: CA-AMGEN-KDL226994

PATIENT
  Sex: Female

DRUGS (1)
  1. ENBREL [Suspect]
     Indication: RHEUMATOID ARTHRITIS
     Route: 058
     Dates: start: 20050901, end: 20060101

REACTIONS (8)
  - CONJUNCTIVITIS [None]
  - ECZEMA [None]
  - KERATODERMA BLENORRHAGICA [None]
  - OEDEMA PERIPHERAL [None]
  - PSORIASIS [None]
  - RHEUMATOID ARTHRITIS [None]
  - TINEA PEDIS [None]
  - UPPER RESPIRATORY TRACT INFECTION [None]
